FAERS Safety Report 8447712-0 (Version None)
Quarter: 2012Q2

REPORT INFORMATION
  Report Type: 
  Country: None (occurrence: None)
  Receive Date: 20120619
  Receipt Date: 20120608
  Transmission Date: 20120825
  Serious: Yes (Hospitalization, Other)
  Sender: FDA-Public Use
  Company Number: FR-BRISTOL-MYERS SQUIBB COMPANY-16678849

PATIENT
  Age: 91 Year
  Sex: Female

DRUGS (9)
  1. COUMADIN [Suspect]
     Indication: DEEP VEIN THROMBOSIS
     Route: 048
     Dates: start: 20120415
  2. DOMPERIDONE [Concomitant]
  3. PLAVIX [Concomitant]
  4. VERAPAMIL [Concomitant]
  5. PREDNISONE TAB [Concomitant]
  6. INNOHEP [Concomitant]
     Dates: end: 20120425
  7. CRESTOR [Concomitant]
  8. LEVOTHYROXINE SODIUM [Concomitant]
  9. SITAGLIPTIN PHOSPHATE [Concomitant]

REACTIONS (3)
  - INTERNATIONAL NORMALISED RATIO INCREASED [None]
  - EPISTAXIS [None]
  - HYPERTENSION [None]
